FAERS Safety Report 15265255 (Version 7)
Quarter: 2019Q2

REPORT INFORMATION
  Report Type: Spontaneous
  Country: US (occurrence: US)
  Receive Date: 20180810
  Receipt Date: 20190603
  Transmission Date: 20190711
  Serious: No
  Sender: FDA-Public Use
  Company Number: US-SA-2018SA217814

PATIENT
  Age: 65 Year
  Sex: Female

DRUGS (2)
  1. KEVZARA [Suspect]
     Active Substance: SARILUMAB
     Indication: RHEUMATOID ARTHRITIS
     Dosage: 200 MG, QOW
     Route: 058
     Dates: start: 201807
  2. KEVZARA [Suspect]
     Active Substance: SARILUMAB
     Dosage: 200 MG, QOW
     Route: 058

REACTIONS (9)
  - Nasopharyngitis [Unknown]
  - Headache [Unknown]
  - Alopecia [Unknown]
  - Injection site reaction [Unknown]
  - Contusion [Unknown]
  - Product dose omission [Unknown]
  - Skin texture abnormal [Unknown]
  - Fatigue [Unknown]
  - Pain in extremity [Unknown]
